FAERS Safety Report 9249426 (Version 1)
Quarter: 2013Q2

REPORT INFORMATION
  Report Type: Spontaneous
  Country: CA (occurrence: CA)
  Receive Date: 20130423
  Receipt Date: 20130423
  Transmission Date: 20140414
  Serious: Yes (Hospitalization)
  Sender: FDA-Public Use
  Company Number: CA-GLAXOSMITHKLINE-A1020698A

PATIENT
  Sex: Male
  Weight: 75 kg

DRUGS (1)
  1. ADVAIR [Suspect]
     Indication: EMPHYSEMA
     Dosage: 1PUFF TWICE PER DAY
     Route: 055
     Dates: start: 2011

REACTIONS (6)
  - Upper limb fracture [Not Recovered/Not Resolved]
  - Fall [Unknown]
  - Hypertension [Not Recovered/Not Resolved]
  - Local swelling [Unknown]
  - Dry mouth [Not Recovered/Not Resolved]
  - Treatment noncompliance [Unknown]
